FAERS Safety Report 4543056-8 (Version None)
Quarter: 2004Q4

REPORT INFORMATION
  Report Type: 
  Country: None (occurrence: None)
  Receive Date: 20041229
  Receipt Date: 20041229
  Transmission Date: 20050328
  Serious: No
  Sender: FDA-Public Use
  Company Number: None

PATIENT
  Age: 67 Year
  Sex: Female
  Weight: 65.7716 kg

DRUGS (4)
  1. REMICADE [Suspect]
     Indication: PSORIATIC ARTHROPATHY
     Dosage: 200 MG   EVERY 2 MONTHS   INTRAVENOU
     Route: 042
     Dates: start: 20030917, end: 20040305
  2. METHOTREXATE [Concomitant]
  3. SYNTHROID [Concomitant]
  4. ZIAC [Concomitant]

REACTIONS (1)
  - BREAST CANCER [None]
